FAERS Safety Report 12302153 (Version 1)
Quarter: 2016Q2

REPORT INFORMATION
  Report Type: Spontaneous
  Country: PL (occurrence: PL)
  Receive Date: 20160425
  Receipt Date: 20160425
  Transmission Date: 20160815
  Serious: Yes (Other)
  Sender: FDA-Public Use
  Company Number: PL-ALLERGAN-1650499

PATIENT
  Age: 48 Year
  Sex: Female

DRUGS (2)
  1. LEVOSERT [Suspect]
     Active Substance: LEVONORGESTREL
     Indication: UTERINE LEIOMYOMA
  2. LEVOSERT [Suspect]
     Active Substance: LEVONORGESTREL
     Indication: MENORRHAGIA
     Dosage: 20 ?G, QD
     Route: 015
     Dates: start: 20151217, end: 20160111

REACTIONS (3)
  - Device expulsion [Unknown]
  - Off label use [Unknown]
  - Menorrhagia [Unknown]

NARRATIVE: CASE EVENT DATE: 201512
